FAERS Safety Report 9602513 (Version 1)
Quarter: 2013Q4

REPORT INFORMATION
  Report Type: Spontaneous
  Country: US (occurrence: US)
  Receive Date: 20131007
  Receipt Date: 20131007
  Transmission Date: 20140711
  Serious: No
  Sender: FDA-Public Use
  Company Number: US-009507513-1309USA013456

PATIENT
  Sex: Female
  Weight: 68.93 kg

DRUGS (3)
  1. NUVARING [Suspect]
     Indication: CONTRACEPTION
     Dosage: 1 RING FOR 3 WEEKS/WEEK FREE BREAK
     Route: 067
     Dates: start: 201210, end: 20130912
  2. CYANOCOBALAMIN [Concomitant]
  3. GINSENG (UNSPECIFIED) [Concomitant]

REACTIONS (4)
  - Sinusitis [Not Recovered/Not Resolved]
  - Dehydration [Not Recovered/Not Resolved]
  - Smear cervix abnormal [Not Recovered/Not Resolved]
  - Migraine [Not Recovered/Not Resolved]
